FAERS Safety Report 10545300 (Version 10)
Quarter: 2016Q2

REPORT INFORMATION
  Report Type: Report from Study
  Country: DE (occurrence: DE)
  Receive Date: 20141027
  Receipt Date: 20160429
  Transmission Date: 20160815
  Serious: Yes (Hospitalization)
  Sender: FDA-Public Use
  Company Number: PHHO2014DE014296

PATIENT
  Age: 60 Year
  Sex: Male
  Weight: 97.6 kg

DRUGS (12)
  1. METOPROLOL. [Concomitant]
     Active Substance: METOPROLOL
     Indication: HYPERTENSION
     Dosage: 95 MG, QD
     Route: 048
     Dates: start: 20140212
  2. IDEOS [Concomitant]
     Active Substance: CALCIUM CARBONATE\CHOLECALCIFEROL
     Dosage: 1 DF (500 MG/ 4000 IE), QD
     Route: 048
     Dates: start: 20141022
  3. IDEOS [Concomitant]
     Active Substance: CALCIUM CARBONATE\CHOLECALCIFEROL
     Indication: OSTEOPOROSIS PROPHYLAXIS
     Dosage: 1 DF (500 MG/ 4000 IE), QD
     Route: 048
     Dates: start: 20140512, end: 20141020
  4. ZOLEDRONATE [Suspect]
     Active Substance: ZOLEDRONIC ACID
     Indication: PROPHYLAXIS
     Dosage: 4 MG FOR EVERY SIX MONTH
     Route: 042
     Dates: start: 2010, end: 20140602
  5. LGH447 [Suspect]
     Active Substance: INVESTIGATIONAL PRODUCT
     Dosage: 300 MG, QD
     Route: 048
     Dates: start: 20150815, end: 20160406
  6. RAMIPRIL. [Concomitant]
     Active Substance: RAMIPRIL
     Indication: HYPERTENSION
     Dosage: 5 MG, QD
     Route: 048
     Dates: start: 20140304
  7. ALLOPURINOL. [Concomitant]
     Active Substance: ALLOPURINOL
     Indication: HYPERURICAEMIA
     Dosage: 33 MG, QD
     Route: 048
     Dates: start: 1993
  8. LGH447 [Suspect]
     Active Substance: INVESTIGATIONAL PRODUCT
     Dosage: 350 MG, UNK
     Route: 048
     Dates: start: 20141028, end: 20150210
  9. LGH447 [Suspect]
     Active Substance: INVESTIGATIONAL PRODUCT
     Indication: PLASMA CELL MYELOMA
     Dosage: 350 MG, UNK
     Route: 048
     Dates: start: 20131015, end: 20141015
  10. LGH447 [Suspect]
     Active Substance: INVESTIGATIONAL PRODUCT
     Dosage: 350 MG, UNK
     Route: 048
     Dates: start: 20150623, end: 20150814
  11. LGH447 [Suspect]
     Active Substance: INVESTIGATIONAL PRODUCT
     Dosage: 350 MG, UNK
     Route: 048
     Dates: start: 20150224, end: 20150612
  12. LGH447 [Suspect]
     Active Substance: INVESTIGATIONAL PRODUCT
     Dosage: UNK
     Route: 048
     Dates: start: 20160419

REACTIONS (4)
  - Osteonecrosis of jaw [Recovered/Resolved with Sequelae]
  - Osteonecrosis of jaw [Recovered/Resolved with Sequelae]
  - Osteonecrosis of jaw [Recovered/Resolved with Sequelae]
  - Osteonecrosis of jaw [Recovered/Resolved with Sequelae]

NARRATIVE: CASE EVENT DATE: 20141013
